FAERS Safety Report 25804192 (Version 1)
Quarter: 2025Q3

REPORT INFORMATION
  Report Type: Spontaneous
  Country: EU (occurrence: EU)
  Receive Date: 20250915
  Receipt Date: 20250915
  Transmission Date: 20251021
  Serious: Yes (Other)
  Sender: PFIZER
  Company Number: EU-PFIZER INC-PV202500109458

PATIENT
  Age: 59 Year
  Sex: Male

DRUGS (2)
  1. ADALIMUMAB [Suspect]
     Active Substance: ADALIMUMAB
     Indication: Ankylosing spondylitis
     Dates: start: 201909
  2. ADALIMUMAB [Suspect]
     Active Substance: ADALIMUMAB
     Dates: start: 202110

REACTIONS (1)
  - Antisynthetase syndrome [Unknown]

NARRATIVE: CASE EVENT DATE: 20210101
